FAERS Safety Report 8006987-2 (Version None)
Quarter: 2011Q4

REPORT INFORMATION
  Report Type: 
  Country: None (occurrence: None)
  Receive Date: 20111227
  Receipt Date: 20111214
  Transmission Date: 20120403
  Serious: Yes (Other)
  Sender: FDA-Public Use
  Company Number: PHHY2011IL111027

PATIENT
  Sex: Female

DRUGS (3)
  1. MYCOPHENOLATE MOFETIL [Suspect]
     Indication: NEPHROTIC SYNDROME
     Dosage: 175 UG/WEEK
  2. CYCLOSPORINE [Suspect]
     Indication: NEPHROTIC SYNDROME
     Dosage: UNK UKN, UNK
  3. METHYLPREDNISOLONE [Suspect]
     Indication: NEPHROTIC SYNDROME
     Dosage: UNK UKN, UNK

REACTIONS (5)
  - RENAL IMPAIRMENT [None]
  - FOCAL SEGMENTAL GLOMERULOSCLEROSIS [None]
  - DRUG INEFFECTIVE [None]
  - RENAL FAILURE CHRONIC [None]
  - RENAL GRAFT LOSS [None]
